FAERS Safety Report 17512059 (Version 1)
Quarter: 2020Q1

REPORT INFORMATION
  Report Type: Spontaneous
  Country: BR (occurrence: BR)
  Receive Date: 20200307
  Receipt Date: 20200307
  Transmission Date: 20200409
  Serious: Yes (Other)
  Sender: FDA-Public Use
  Company Number: BR-AMGEN-BRASP2020036856

PATIENT
  Age: 62 Year
  Sex: Female

DRUGS (1)
  1. ENBREL [Suspect]
     Active Substance: ETANERCEPT
     Indication: PRODUCT USED FOR UNKNOWN INDICATION
     Dosage: UNK
     Route: 065
     Dates: start: 2017, end: 20200124

REACTIONS (7)
  - Pruritus [Unknown]
  - Swelling face [Unknown]
  - Feeling abnormal [Unknown]
  - Vomiting [Unknown]
  - Vasculitis [Recovered/Resolved]
  - Hypersensitivity [Unknown]
  - Rash macular [Unknown]
